FAERS Safety Report 7088574-6 (Version None)
Quarter: 2010Q4

REPORT INFORMATION
  Report Type: 
  Country: None (occurrence: None)
  Receive Date: 20101108
  Receipt Date: 20101029
  Transmission Date: 20110411
  Serious: Yes (Hospitalization, Other)
  Sender: FDA-Public Use
  Company Number: US-US-EMD SERONO, INC.-230474J08USA

PATIENT
  Sex: Female
  Weight: 64 kg

DRUGS (5)
  1. REBIF [Suspect]
     Indication: MULTIPLE SCLEROSIS
     Route: 058
     Dates: start: 20071010
  2. STEROIDS [Suspect]
  3. COREG [Concomitant]
     Indication: HYPERTENSION
     Route: 065
     Dates: start: 20061201
  4. ALDACTONE [Concomitant]
     Indication: HYPERTENSION
     Route: 065
     Dates: start: 20061201
  5. TOPAMAX [Concomitant]
     Indication: CONVULSION
     Route: 065
     Dates: start: 20070901, end: 20080101

REACTIONS (5)
  - BLOOD GLUCOSE INCREASED [None]
  - COMPLEX PARTIAL SEIZURES [None]
  - FATIGUE [None]
  - INJECTION SITE PAIN [None]
  - MULTIPLE SCLEROSIS RELAPSE [None]
